FAERS Safety Report 5016151-7 (Version None)
Quarter: 2006Q2

REPORT INFORMATION
  Report Type: 
  Country: None (occurrence: None)
  Receive Date: 20060414
  Receipt Date: 20060206
  Transmission Date: 20061013
  Serious: No
  Sender: FDA-Public Use
  Company Number: 2006SP000662

PATIENT
  Age: 53 Year
  Sex: Male
  Weight: 147.419 kg

DRUGS (6)
  1. LUNESTA [Suspect]
     Indication: INSOMNIA
     Dosage: SEE IMAGE
     Route: 048
     Dates: start: 20060101, end: 20060101
  2. LUNESTA [Suspect]
     Indication: INSOMNIA
     Dosage: SEE IMAGE
     Route: 048
     Dates: start: 20060101, end: 20060201
  3. ALLOPURINOL [Concomitant]
  4. LEVOXYL [Concomitant]
  5. ALBUTEROL SPIROS [Concomitant]
  6. OXYGEN [Concomitant]

REACTIONS (1)
  - INSOMNIA [None]
